FAERS Safety Report 23388728 (Version 1)
Quarter: 2024Q1

REPORT INFORMATION
  Report Type: Spontaneous
  Country: US (occurrence: None)
  Receive Date: 20240109
  Receipt Date: 20240109
  Transmission Date: 20240410
  Serious: Yes (Life-Threatening, Other)
  Sender: FDA-Public Use
  Company Number: None

PATIENT
  Age: 43 Year
  Sex: Female
  Weight: 70.31 kg

DRUGS (1)
  1. MIRENA [Suspect]
     Active Substance: LEVONORGESTREL

REACTIONS (7)
  - Headache [None]
  - Blood cholesterol increased [None]
  - Retinal haemorrhage [None]
  - Blood pressure increased [None]
  - Cardiac disorder [None]
  - Superior semicircular canal dehiscence [None]
  - Intracranial pressure increased [None]

NARRATIVE: CASE EVENT DATE: 20230210
